FAERS Safety Report 4673541-X (Version None)
Quarter: 2005Q2

REPORT INFORMATION
  Report Type: 
  Country: None (occurrence: None)
  Receive Date: 20050523
  Receipt Date: 20050516
  Transmission Date: 20051028
  Serious: Yes (Death)
  Sender: FDA-Public Use
  Company Number: 200511969BCC

PATIENT
  Age: 96 Year
  Sex: Male
  Weight: 68.0396 kg

DRUGS (1)
  1. ASPIRIN [Suspect]
     Indication: ARTHRITIS
     Dosage: 5200 MG TOTAL DAILY, ORAL
     Route: 048

REACTIONS (1)
  - DEATH [None]
